FAERS Safety Report 12434505 (Version 3)
Quarter: 2016Q3

REPORT INFORMATION
  Report Type: Report from Study
  Country: US (occurrence: US)
  Receive Date: 20160603
  Receipt Date: 20160729
  Transmission Date: 20161109
  Serious: Yes (Death, Hospitalization)
  Sender: FDA-Public Use
  Company Number: US-ACTELION-A-NJ2015-127544

PATIENT
  Age: 50 Year
  Sex: Female

DRUGS (6)
  1. VELETRI [Suspect]
     Active Substance: EPOPROSTENOL
     Dosage: UNK
     Route: 042
  2. REVATIO [Concomitant]
     Active Substance: SILDENAFIL CITRATE
  3. ADCIRCA [Concomitant]
     Active Substance: TADALAFIL
  4. NORCO [Concomitant]
     Active Substance: ACETAMINOPHEN\HYDROCODONE BITARTRATE
     Dosage: 10 MG, UNK
  5. CELEXA [Suspect]
     Active Substance: CITALOPRAM HYDROBROMIDE
     Indication: PRODUCT USED FOR UNKNOWN INDICATION
     Route: 065
  6. VELETRI [Suspect]
     Active Substance: EPOPROSTENOL
     Indication: PULMONARY HYPERTENSION
     Dosage: 3.5 NG/KG, PER MIN
     Route: 042
     Dates: start: 20151109, end: 20160610

REACTIONS (24)
  - Death [Fatal]
  - Ascites [Unknown]
  - Weight increased [Unknown]
  - Fluid retention [Unknown]
  - Wheezing [Unknown]
  - Musculoskeletal chest pain [Unknown]
  - Dizziness [Recovered/Resolved]
  - Dyspnoea [Unknown]
  - Internal haemorrhage [Unknown]
  - Pain in jaw [Unknown]
  - Abdominal pain upper [Unknown]
  - Nausea [Unknown]
  - Feeling hot [Unknown]
  - Oedema peripheral [Unknown]
  - Constipation [Unknown]
  - Abdominal pain [Unknown]
  - Weight decreased [Unknown]
  - Headache [Unknown]
  - Transplant evaluation [Unknown]
  - Back pain [Unknown]
  - Musculoskeletal discomfort [Unknown]
  - Decreased appetite [Unknown]
  - Complication associated with device [Unknown]
  - Oedema [Unknown]

NARRATIVE: CASE EVENT DATE: 20160228
